FAERS Safety Report 8842640 (Version 2)
Quarter: 2012Q4

REPORT INFORMATION
  Report Type: 
  Country: DE (occurrence: DE)
  Receive Date: 20121016
  Receipt Date: 20121029
  Transmission Date: 20130627
  Serious: Yes (Other)
  Sender: FDA-Public Use
  Company Number: DE-JNJFOC-20120602710

PATIENT
  Age: 78 Year
  Sex: Male
  Weight: 75 kg

DRUGS (3)
  1. ZYTIGA [Suspect]
     Indication: PROSTATE CANCER METASTATIC
     Route: 048
     Dates: start: 20120206, end: 20120222
  2. PREDNISOLONE [Concomitant]
     Indication: PROSTATE CANCER METASTATIC
     Route: 065
  3. MCP [Concomitant]
     Dosage: 3x20 drops
     Route: 065

REACTIONS (6)
  - Bone pain [Recovered/Resolved]
  - General physical health deterioration [Recovered/Resolved]
  - Prostatic specific antigen increased [Recovered/Resolved]
  - Blood alkaline phosphatase increased [Recovered/Resolved]
  - Muscular weakness [Recovered/Resolved]
  - Initial insomnia [Recovered/Resolved]
